FAERS Safety Report 17790153 (Version 1)
Quarter: 2020Q2

REPORT INFORMATION
  Report Type: Spontaneous
  Country: US (occurrence: US)
  Receive Date: 20200513
  Receipt Date: 20200513
  Transmission Date: 20200714
  Serious: No
  Sender: FDA-Public Use
  Company Number: None

PATIENT
  Age: 46 Year
  Sex: Male
  Weight: 61 kg

DRUGS (2)
  1. MORPHINE (MORPHINE SO4 1MG/ML INJ) [Suspect]
     Active Substance: MORPHINE SULFATE
     Indication: PAIN
     Route: 042
     Dates: start: 20200424
  2. ACETAMINOPHEN/HYDROCODONE (HYDROCODONE 5MG/ACETAMINOPHEN 325MG TAB) [Suspect]
     Active Substance: ACETAMINOPHEN\HYDROCODONE
     Route: 048

REACTIONS (6)
  - Prerenal failure [None]
  - Acute kidney injury [None]
  - Hypotension [None]
  - Obstruction [None]
  - Fall [None]
  - Humerus fracture [None]

NARRATIVE: CASE EVENT DATE: 20200430
